FAERS Safety Report 16813504 (Version 1)
Quarter: 2019Q3

REPORT INFORMATION
  Report Type: Spontaneous
  Country: US (occurrence: US)
  Receive Date: 20190917
  Receipt Date: 20190917
  Transmission Date: 20191005
  Serious: No
  Sender: FDA-Public Use
  Company Number: US-BEH-2019106199

PATIENT
  Sex: Male

DRUGS (14)
  1. HIZENTRA [Suspect]
     Active Substance: HUMAN IMMUNOGLOBULIN G
     Indication: IMMUNODEFICIENCY COMMON VARIABLE
     Dosage: 6 GRAM (30ML), QW
     Route: 058
  2. CARVEDILOL. [Concomitant]
     Active Substance: CARVEDILOL
  3. ELIQUIS [Concomitant]
     Active Substance: APIXABAN
  4. COLCHICINE. [Concomitant]
     Active Substance: COLCHICINE
  5. PREDNISONE. [Concomitant]
     Active Substance: PREDNISONE
  6. HYDRALAZINE HCL [Concomitant]
     Active Substance: HYDRALAZINE HYDROCHLORIDE
  7. SUPER B COMPLEX WITH VITAMIN C [Concomitant]
  8. ASPIRIN 81 [Concomitant]
     Active Substance: ASPIRIN
  9. LISINOPRIL. [Concomitant]
     Active Substance: LISINOPRIL
  10. SIMVASTATIN. [Concomitant]
     Active Substance: SIMVASTATIN
  11. VITAMIN C [Concomitant]
     Active Substance: ASCORBIC ACID
  12. ROSUVASTATIN CALCIUM. [Concomitant]
     Active Substance: ROSUVASTATIN CALCIUM
  13. LEVETIRACETAM. [Concomitant]
     Active Substance: LEVETIRACETAM
  14. AMOXICILLIN. [Concomitant]
     Active Substance: AMOXICILLIN

REACTIONS (2)
  - No adverse event [Unknown]
  - Intentional dose omission [Unknown]
